FAERS Safety Report 11776673 (Version 1)
Quarter: 2015Q4

REPORT INFORMATION
  Report Type: Spontaneous
  Country: US (occurrence: None)
  Receive Date: 20151124
  Receipt Date: 20151124
  Transmission Date: 20160304
  Serious: Yes (Death)
  Sender: FDA-Public Use
  Company Number: None

PATIENT
  Age: 60 Year
  Sex: Female
  Weight: 99.79 kg

DRUGS (9)
  1. AMLOIPINE [Concomitant]
  2. POTASSIUM CITRATE. [Concomitant]
     Active Substance: POTASSIUM CITRATE
  3. ASPRIN [Concomitant]
     Active Substance: ASPIRIN
  4. BRILINTA [Concomitant]
     Active Substance: TICAGRELOR
  5. LISINIPRIL [Concomitant]
  6. ATORVASTATION [Concomitant]
  7. FISH OIL [Concomitant]
     Active Substance: FISH OIL
  8. MULTI-VITAMIN [Concomitant]
     Active Substance: .ALPHA.-TOCOPHEROL ACETATE, DL-\ASCORBIC ACID\CYANOCOBALAMIN\FLUORIDE ION\FOLIC ACID\NIACIN\PYRIDOXINE\RIBOFLAVIN\THIAMINE\VITAMIN A\VITAMIN D
  9. PRALUENT [Suspect]
     Active Substance: ALIROCUMAB
     Indication: BLOOD CHOLESTEROL INCREASED
     Dosage: EVERY TWO WEEKS, GIVEN INTO/UNDER THE SKIN
     Dates: start: 20150918, end: 20151116

REACTIONS (2)
  - Agitation [None]
  - Completed suicide [None]

NARRATIVE: CASE EVENT DATE: 20151116
